FAERS Safety Report 8535845-X (Version None)
Quarter: 2012Q3

REPORT INFORMATION
  Report Type: 
  Country: None (occurrence: None)
  Receive Date: 20120725
  Receipt Date: 20120716
  Transmission Date: 20120928
  Serious: Yes (Hospitalization, Other)
  Sender: FDA-Public Use
  Company Number: IT-ASTRAZENECA-2012SE49259

PATIENT
  Sex: Female

DRUGS (2)
  1. MEPIVACAINE HYDROCHLORIDE [Suspect]
     Indication: LOCAL ANAESTHESIA
     Dosage: 2% INJECTABLE SOLUTION 10 ML (5 VIALS), ONCE/SINGLE ADMINISTRATION
     Route: 059
     Dates: start: 20120711, end: 20120711
  2. ROPIVACAINE HYDROCHLORIDE [Suspect]
     Indication: LOCAL ANAESTHESIA
     Dosage: 7.5 MG/ML, 10 ML INJECTABLE SOLUTION, ONCE/SINGLE ADMINISTRATION
     Route: 059
     Dates: start: 20120711, end: 20120711

REACTIONS (5)
  - HYPOTENSION [None]
  - TREMOR [None]
  - RETCHING [None]
  - DYSPNOEA [None]
  - LARYNGEAL OEDEMA [None]
